FAERS Safety Report 17277593 (Version 1)
Quarter: 2020Q1

REPORT INFORMATION
  Report Type: Other
  Country: CN (occurrence: CN)
  Receive Date: 20200116
  Receipt Date: 20200116
  Transmission Date: 20200409
  Serious: Yes (Other)
  Sender: FDA-Public Use
  Company Number: CN-AGG-08-2019-2003

PATIENT
  Sex: Female

DRUGS (6)
  1. CLOPIDOGREL [Concomitant]
     Active Substance: CLOPIDOGREL BISULFATE
     Dosage: ORALLY GIVEN DAILY BEFORE PCI SURGERY
     Route: 048
  2. ASPIRIN. [Concomitant]
     Active Substance: ASPIRIN
     Dosage: AFTER PCI SURGERY FOR AT LEAST 12 MONTHS
     Route: 048
  3. ASPIRIN. [Concomitant]
     Active Substance: ASPIRIN
     Dosage: ORALLY GIVEN DAILY BEFORE PCI SURGERY
     Route: 048
  4. CLOPIDOGREL [Concomitant]
     Active Substance: CLOPIDOGREL BISULFATE
     Dosage: AFTER PCI SURGERY FOR AT LEAST 12 MONTHS
     Route: 048
  5. AGGRASTAT [Suspect]
     Active Substance: TIROFIBAN HYDROCHLORIDE
     Indication: ANTIPLATELET THERAPY
     Dosage: LOADING DOSE
     Route: 022
  6. AGGRASTAT [Suspect]
     Active Substance: TIROFIBAN HYDROCHLORIDE
     Indication: ANTIPLATELET THERAPY
     Dosage: ADMINISTRATION WAS SUSTAINED INTRAVENOUSLY FOR 24 HOURS
     Route: 042

REACTIONS (1)
  - Angina pectoris [Unknown]
